FAERS Safety Report 6757722-7 (Version None)
Quarter: 2010Q2

REPORT INFORMATION
  Report Type: 
  Country: None (occurrence: None)
  Receive Date: 20100607
  Receipt Date: 20100527
  Transmission Date: 20101027
  Serious: Yes (Other)
  Sender: FDA-Public Use
  Company Number: US-BAYER-200943727NA

PATIENT
  Age: 39 Year
  Sex: Female
  Weight: 55 kg

DRUGS (4)
  1. MIRENA [Suspect]
     Indication: CONTRACEPTION
     Dosage: CONTINUOUS
     Route: 015
     Dates: start: 20091119, end: 20091217
  2. YASMIN [Suspect]
     Indication: DRUG USE FOR UNKNOWN INDICATION
  3. YAZ [Suspect]
     Indication: DRUG USE FOR UNKNOWN INDICATION
  4. ADVIL LIQUI-GELS [Concomitant]
     Indication: ABDOMINAL PAIN LOWER

REACTIONS (9)
  - ABDOMINAL PAIN LOWER [None]
  - ACNE [None]
  - BACK PAIN [None]
  - BREAST TENDERNESS [None]
  - DEVICE DISLOCATION [None]
  - HEADACHE [None]
  - MEDICAL DEVICE COMPLICATION [None]
  - METRORRHAGIA [None]
  - PELVIC PAIN [None]
